FAERS Safety Report 4892505-4 (Version None)
Quarter: 2006Q1

REPORT INFORMATION
  Report Type: 
  Country: None (occurrence: None)
  Receive Date: 20060125
  Receipt Date: 20060125
  Transmission Date: 20060701
  Serious: Yes (Life-Threatening, Hospitalization)
  Sender: FDA-Public Use
  Company Number: None

PATIENT
  Sex: Female
  Weight: 76 kg

DRUGS (9)
  1. ACETAMINOPHEN [Suspect]
     Indication: SUICIDE ATTEMPT
     Dosage: ONCE  PO
     Route: 048
     Dates: start: 20051010
  2. ALPRAZOLAM [Concomitant]
  3. ESCITALOPRAM OXALATE [Concomitant]
  4. ESOMEPRAZOLE [Concomitant]
  5. METOCLOPRAMIDE [Concomitant]
  6. HYDROCHLOROTHIAZIDE [Concomitant]
  7. OXYCODONE AND ACETAMINOPHEN [Concomitant]
  8. CETIRIZINE [Concomitant]
  9. FLUOXETINE [Concomitant]

REACTIONS (7)
  - ALANINE AMINOTRANSFERASE INCREASED [None]
  - ANALGESIC DRUG LEVEL INCREASED [None]
  - ASPARTATE AMINOTRANSFERASE INCREASED [None]
  - BLOOD PRESSURE DECREASED [None]
  - HEART RATE INCREASED [None]
  - LIFE SUPPORT [None]
  - LOSS OF CONSCIOUSNESS [None]
